FAERS Safety Report 8319453-1 (Version None)
Quarter: 2012Q2

REPORT INFORMATION
  Report Type: 
  Country: None (occurrence: None)
  Receive Date: 20120427
  Receipt Date: 20120419
  Transmission Date: 20120825
  Serious: Yes (Other)
  Sender: FDA-Public Use
  Company Number: US-JNJFOC-20120410424

PATIENT
  Sex: Female

DRUGS (3)
  1. PANCREAZE [Suspect]
     Route: 048
     Dates: start: 20020101
  2. INSULIN [Concomitant]
     Indication: DIABETES MELLITUS
     Route: 065
  3. PANCREAZE [Suspect]
     Indication: PRODUCT USED FOR UNKNOWN INDICATION
     Dosage: DOSE IS 21,000 MICROTABLETS
     Route: 048

REACTIONS (4)
  - FAECAL FAT INCREASED [None]
  - DRUG INEFFECTIVE [None]
  - HEADACHE [None]
  - DIABETES MELLITUS [None]
